FAERS Safety Report 8028136-7 (Version None)
Quarter: 2012Q1

REPORT INFORMATION
  Report Type: 
  Country: None (occurrence: None)
  Receive Date: 20120106
  Receipt Date: 20120104
  Transmission Date: 20120608
  Serious: Yes (Death)
  Sender: FDA-Public Use
  Company Number: US-B.I. PHARMACEUTICALS,INC./RIDGEFIELD-2011-BP-25665BP

PATIENT
  Age: 85 Year
  Sex: Male

DRUGS (1)
  1. DULCOLAX [Suspect]
     Indication: CONSTIPATION
     Route: 054
     Dates: start: 20111027, end: 20111027

REACTIONS (2)
  - DIARRHOEA [None]
  - CARDIAC FAILURE CONGESTIVE [None]
